FAERS Safety Report 5006630-0 (Version None)
Quarter: 2006Q2

REPORT INFORMATION
  Report Type: 
  Country: None (occurrence: None)
  Receive Date: 20060516
  Receipt Date: 20060505
  Transmission Date: 20061013
  Serious: Yes (Hospitalization)
  Sender: FDA-Public Use
  Company Number: RB-3264-2006

PATIENT
  Age: 26 Year
  Sex: Male

DRUGS (1)
  1. BUPRENORPHINE HCL [Suspect]
     Indication: DRUG THERAPY CHANGED
     Dosage: 8 MG IA
     Route: 013
     Dates: start: 20040101, end: 20060101

REACTIONS (6)
  - HAEMATOMA [None]
  - INCORRECT ROUTE OF DRUG ADMINISTRATION [None]
  - INFLAMMATION [None]
  - INJECTION SITE NECROSIS [None]
  - INTENTIONAL DRUG MISUSE [None]
  - OEDEMA PERIPHERAL [None]
